FAERS Safety Report 23739427 (Version 2)
Quarter: 2024Q3

REPORT INFORMATION
  Report Type: Spontaneous
  Country: IN (occurrence: IN)
  Receive Date: 20240413
  Receipt Date: 20240729
  Transmission Date: 20241017
  Serious: Yes (Hospitalization, Other)
  Sender: STRIDES
  Company Number: None

PATIENT
  Sex: Male

DRUGS (3)
  1. PREDNISOLONE [Suspect]
     Active Substance: PREDNISOLONE
     Indication: Nephrotic syndrome
     Dosage: UNK
     Route: 048
  2. PREDNISOLONE [Suspect]
     Active Substance: PREDNISOLONE
     Dosage: UNK (ON TAPERING DOSES)
     Route: 048
  3. MYCOPHENOLATE MOFETIL [Suspect]
     Active Substance: MYCOPHENOLATE MOFETIL
     Indication: Nephrotic syndrome
     Dosage: UNK (TABLET)
     Route: 065

REACTIONS (10)
  - Wernicke^s encephalopathy [Recovered/Resolved]
  - Short stature [Recovered/Resolved]
  - Osteopenia [Recovered/Resolved]
  - Nystagmus [Recovered/Resolved]
  - Cataract subcapsular [Recovered/Resolved]
  - Cushingoid [Recovered/Resolved]
  - Steroid dependence [Recovered/Resolved]
  - Hypertension [Recovered/Resolved]
  - Toxicity to various agents [Recovered/Resolved]
  - Off label use [Unknown]
